FAERS Safety Report 5378172-4 (Version None)
Quarter: 2007Q3

REPORT INFORMATION
  Report Type: 
  Country: None (occurrence: None)
  Receive Date: 20070705
  Receipt Date: 20070622
  Transmission Date: 20080115
  Serious: Yes (Other)
  Sender: FDA-Public Use
  Company Number: US-JNJFOC-20070605625

PATIENT
  Age: 59 Year
  Sex: Female
  Weight: 70.31 kg

DRUGS (5)
  1. REMICADE [Suspect]
     Indication: SPONDYLITIS
     Route: 042
  2. REMICADE [Suspect]
     Indication: CROHN'S DISEASE
     Route: 042
  3. PENTASA [Concomitant]
  4. PIROXICAM [Concomitant]
     Indication: ARTHRITIS
  5. VITAMIN CAP [Concomitant]

REACTIONS (1)
  - GASTROINTESTINAL STROMAL TUMOUR [None]
